FAERS Safety Report 16537901 (Version 2)
Quarter: 2019Q3

REPORT INFORMATION
  Report Type: Spontaneous
  Country: LB (occurrence: LB)
  Receive Date: 20190708
  Receipt Date: 20190716
  Transmission Date: 20191004
  Serious: Yes (Death, Hospitalization)
  Sender: FDA-Public Use
  Company Number: LB-SA-2019SA179734

PATIENT
  Age: 84 Year
  Sex: Male
  Weight: 60 kg

DRUGS (5)
  1. OMNIC OCA [Suspect]
     Active Substance: TAMSULOSIN HYDROCHLORIDE
     Indication: BENIGN PROSTATIC HYPERPLASIA
     Dosage: UNK UNK, QD
     Route: 048
  2. PREDNISONE. [Concomitant]
     Active Substance: PREDNISONE
     Dosage: UNK UNK, UNK
     Route: 065
  3. ZYTIGA [Concomitant]
     Active Substance: ABIRATERONE ACETATE
     Dosage: UNK UNK, UNK
     Route: 065
  4. LASIX [Concomitant]
     Active Substance: FUROSEMIDE
     Dosage: UNK UNK, UNK
     Route: 065
  5. AVODART [Concomitant]
     Active Substance: DUTASTERIDE
     Dosage: UNK UNK, UNK
     Route: 065

REACTIONS (3)
  - Disease progression [Fatal]
  - Decreased appetite [Unknown]
  - Blood sodium decreased [Recovering/Resolving]
